FAERS Safety Report 19868581 (Version 7)
Quarter: 2022Q1

REPORT INFORMATION
  Report Type: Report from Study
  Country: DE (occurrence: None)
  Receive Date: 20210922
  Receipt Date: 20220219
  Transmission Date: 20220423
  Serious: Yes (Hospitalization)
  Sender: FDA-Public Use
  Company Number: DE-ROCHE-2885365

PATIENT
  Age: 24 Year
  Sex: Female
  Weight: 85 kg

DRUGS (18)
  1. OCRELIZUMAB [Suspect]
     Active Substance: OCRELIZUMAB
     Indication: Relapsing-remitting multiple sclerosis
     Dosage: DATE OF MOST RECENT DOSE OF OCRELIZUMAB PRIOR TO SERIOUS ADVERSE EVENT ONSET: 04/FEB/2021 (DOSE: 600
     Route: 042
     Dates: start: 20190329
  2. METHYLPREDNISOLONE [Suspect]
     Active Substance: METHYLPREDNISOLONE
     Indication: Premedication
     Dosage: DOSE OF LAST METHYLPREDNISOLONE ADMINISTERED PRIOR TO THIS EVENT ONSET: 100 MG?ONCE BEFORE INFUSION
     Route: 042
     Dates: start: 20190329, end: 20190329
  3. LEVONORGESTREL [Concomitant]
     Active Substance: LEVONORGESTREL
     Dates: start: 20190408
  4. CETIRIZINE HYDROCHLORIDE [Concomitant]
     Active Substance: CETIRIZINE HYDROCHLORIDE
     Indication: Premedication
     Dosage: NEXT DOSE ON: 12/APR/2019, 27/SEP/2019, 19/MAR/2020, 03/SEP/2020, 04/FEB/2021, 23/AUG/2021
     Route: 048
     Dates: start: 20190329
  5. ACETAMINOPHEN [Concomitant]
     Active Substance: ACETAMINOPHEN
     Indication: Premedication
     Dosage: NEXT DOSE ON: 12/APR/2019, 27/SEP/2019, 19/MAR/2020, 03/SEP/2020, 04/FEB/2021, 23/AUG/2021
     Route: 048
     Dates: start: 20190329
  6. METOCLOPRAMIDE [Concomitant]
     Active Substance: METOCLOPRAMIDE
     Indication: Nausea
     Route: 048
     Dates: start: 20210625, end: 20210630
  7. METAMIZOLE [Concomitant]
     Active Substance: METAMIZOLE
     Indication: Migraine
     Route: 048
     Dates: start: 20210714
  8. RIZATRIPTAN [Concomitant]
     Active Substance: RIZATRIPTAN
     Indication: Migraine
     Route: 048
     Dates: start: 20210714
  9. AMITRIPTYLINE [Concomitant]
     Active Substance: AMITRIPTYLINE
     Indication: Headache
     Route: 048
     Dates: start: 20200311, end: 20210714
  10. BETAHISTINE [Concomitant]
     Active Substance: BETAHISTINE
     Indication: Vestibular neuronitis
     Route: 048
     Dates: start: 20190508, end: 20190514
  11. BETAHISTINE [Concomitant]
     Active Substance: BETAHISTINE
     Route: 048
     Dates: start: 20190717
  12. AMPHOTERICIN B [Concomitant]
     Active Substance: AMPHOTERICIN B
     Route: 042
     Dates: start: 20211126, end: 20211129
  13. AMPICILLIN [Concomitant]
     Active Substance: AMPICILLIN
     Route: 042
     Dates: start: 20211126
  14. CHOLECALCIFEROL [Concomitant]
     Active Substance: CHOLECALCIFEROL
     Route: 048
     Dates: start: 20211126
  15. ENOXAPARIN [Concomitant]
     Active Substance: ENOXAPARIN
     Dates: start: 20211126
  16. FLUCLOXACILLIN [Concomitant]
     Active Substance: FLUCLOXACILLIN
     Route: 042
     Dates: start: 20211126
  17. GENTAMICIN [Concomitant]
     Active Substance: GENTAMICIN
     Dates: start: 20211126
  18. TORSEMIDE [Concomitant]
     Active Substance: TORSEMIDE
     Dates: start: 20211126

REACTIONS (1)
  - Transaminases increased [Recovered/Resolved]

NARRATIVE: CASE EVENT DATE: 20210613
